FAERS Safety Report 10758514 (Version 1)
Quarter: 2015Q1

REPORT INFORMATION
  Report Type: Spontaneous
  Country: US (occurrence: US)
  Receive Date: 20150203
  Receipt Date: 20150203
  Transmission Date: 20150721
  Serious: Yes (Other)
  Sender: FDA-Public Use
  Company Number: US-ASTRAZENECA-2015SE09412

PATIENT
  Age: 25354 Day
  Sex: Female

DRUGS (1)
  1. CRESTOR [Suspect]
     Active Substance: ROSUVASTATIN CALCIUM
     Indication: BLOOD CHOLESTEROL ABNORMAL
     Route: 048
     Dates: start: 20140902, end: 20140914

REACTIONS (4)
  - Blood urine present [Unknown]
  - Urinary tract infection [Unknown]
  - Urinary tract pain [Unknown]
  - Proteinuria [Unknown]

NARRATIVE: CASE EVENT DATE: 20140909
